FAERS Safety Report 5185328-2 (Version None)
Quarter: 2006Q4

REPORT INFORMATION
  Report Type: 
  Country: None (occurrence: None)
  Receive Date: 20061212
  Receipt Date: 20050719
  Transmission Date: 20070319
  Serious: Yes (Hospitalization)
  Sender: FDA-Public Use
  Company Number: S05-USA-03464-01

PATIENT
  Age: 72 Year
  Sex: Female
  Weight: 235 kg

DRUGS (7)
  1. TIAZAC [Suspect]
     Indication: HYPERTENSION
     Dosage: 180 MG QHS PO
     Route: 048
     Dates: start: 20020618, end: 20020702
  2. LEVAQUIN [Concomitant]
  3. MICARDIS HCT [Concomitant]
  4. ZYRTEC (CETIRIZINE HYRDOCHLORIDE) [Concomitant]
  5. ACCUPRIL [Concomitant]
  6. FUROSEMIDE [Concomitant]
  7. GLUCOTROL [Concomitant]

REACTIONS (11)
  - ASTHENIA [None]
  - DEHYDRATION [None]
  - DRUG ERUPTION [None]
  - DRUG HYPERSENSITIVITY [None]
  - ERYTHEMA MULTIFORME [None]
  - FEELING HOT [None]
  - HYPERGLYCAEMIA [None]
  - PARAESTHESIA [None]
  - POST INFLAMMATORY PIGMENTATION CHANGE [None]
  - RECTAL HAEMORRHAGE [None]
  - STEVENS-JOHNSON SYNDROME [None]
